FAERS Safety Report 6666067-5 (Version None)
Quarter: 2010Q2

REPORT INFORMATION
  Report Type: 
  Country: None (occurrence: None)
  Receive Date: 20100402
  Receipt Date: 20100330
  Transmission Date: 20101027
  Serious: Yes (Other)
  Sender: FDA-Public Use
  Company Number: CHPA2010US05972

PATIENT
  Age: 73 Year
  Sex: Male
  Weight: 79.365 kg

DRUGS (1)
  1. PRIVATE LABEL (NCH) [Suspect]
     Indication: SMOKING CESSATION THERAPY
     Dosage: 21 MG, QD
     Route: 062
     Dates: start: 20100201, end: 20100301

REACTIONS (4)
  - HALLUCINATION [None]
  - HEADACHE [None]
  - NIGHT SWEATS [None]
  - OFF LABEL USE [None]
